FAERS Safety Report 6149252-0 (Version None)
Quarter: 2009Q2

REPORT INFORMATION
  Report Type: 
  Country: None (occurrence: None)
  Receive Date: 20090406
  Receipt Date: 20090406
  Transmission Date: 20091009
  Serious: No
  Sender: FDA-Public Use
  Company Number: None

PATIENT
  Age: 37 Year
  Sex: Female
  Weight: 56.6996 kg

DRUGS (1)
  1. CHANTIX [Suspect]
     Indication: SMOKING CESSATION THERAPY
     Dosage: 1 TABLET FIRST 3 DAYS ONCE A DAY PO
     Route: 048
     Dates: start: 20090401, end: 20090404

REACTIONS (2)
  - BACK PAIN [None]
  - BEDRIDDEN [None]
